FAERS Safety Report 4349380-6 (Version None)
Quarter: 2004Q2

REPORT INFORMATION
  Report Type: 
  Country: None (occurrence: None)
  Receive Date: 20040428
  Receipt Date: 20021007
  Transmission Date: 20050107
  Serious: Yes (Hospitalization, Other)
  Sender: FDA-Public Use
  Company Number: US-BRISTOL-MYERS SQUIBB COMPANY-12065579

PATIENT
  Age: 46 Year
  Sex: Male

DRUGS (7)
  1. BMS224818 [Concomitant]
     Dosage: NOT REALLOCATED
     Route: 042
     Dates: start: 20020803, end: 20021011
  2. MYCOPHENOLATE MOFETIL [Suspect]
     Dates: start: 20020803
  3. PREDNISOLONE SODIUM SUCCINATE INJ [Suspect]
     Route: 048
     Dates: start: 20020805
  4. LISINOPRIL [Concomitant]
     Dates: start: 20020824
  5. VALACYCLOVIR HCL [Concomitant]
     Dates: start: 20020814
  6. COTRIM [Concomitant]
     Dates: start: 20020804
  7. RANITIDINE [Concomitant]
     Dates: start: 20020805

REACTIONS (1)
  - TRANSPLANT REJECTION [None]
